FAERS Safety Report 5948337-9 (Version None)
Quarter: 2008Q4

REPORT INFORMATION
  Report Type: 
  Country: None (occurrence: None)
  Receive Date: 20081111
  Receipt Date: 20081104
  Transmission Date: 20090506
  Serious: Yes (Death)
  Sender: FDA-Public Use
  Company Number: US-AVENTIS-200817532US

PATIENT
  Sex: Female

DRUGS (3)
  1. LANTUS [Suspect]
     Indication: GESTATIONAL DIABETES
     Dosage: DOSE: UNK
     Dates: end: 20080101
  2. PRENATAL VITAMINS                  /01549301/ [Concomitant]
     Indication: PREGNANCY
     Dosage: DOSE: UNK
  3. INSULIN [Concomitant]
     Dosage: DOSE: UNK
     Dates: end: 20080901

REACTIONS (2)
  - DRUG EXPOSURE DURING PREGNANCY [None]
  - MYOCARDIAL INFARCTION [None]
